FAERS Safety Report 7438021-7 (Version None)
Quarter: 2011Q2

REPORT INFORMATION
  Report Type: 
  Country: None (occurrence: None)
  Receive Date: 20110426
  Receipt Date: 20100914
  Transmission Date: 20111010
  Serious: No
  Sender: FDA-Public Use
  Company Number: US-MYLANLABS-2010S1016996

PATIENT
  Age: 27 Year
  Sex: Female

DRUGS (3)
  1. ZOFRAN [Concomitant]
     Indication: NAUSEA
  2. NITROFURANTOIN MONOHYDRATE/MACROCRYSTALS [Suspect]
     Dates: start: 20100913
  3. NITROFURANTOIN MONOHYDRATE/MACROCRYSTALS [Suspect]
     Dates: start: 20090922, end: 20091001

REACTIONS (2)
  - VOMITING [None]
  - URTICARIA [None]
